FAERS Safety Report 8070595-8 (Version None)
Quarter: 2012Q1

REPORT INFORMATION
  Report Type: 
  Country: None (occurrence: None)
  Receive Date: 20120125
  Receipt Date: 20120113
  Transmission Date: 20120608
  Serious: Yes (Hospitalization, Other)
  Sender: FDA-Public Use
  Company Number: PHHY2012FR003468

PATIENT
  Sex: Male
  Weight: 85 kg

DRUGS (6)
  1. AMLODIPINE BESYLATE [Concomitant]
     Indication: HYPERTENSION
     Dosage: 10 MG, QD
     Dates: start: 20060320
  2. LASIX [Concomitant]
     Indication: HYPERTENSION
     Dosage: 20 MG, QD
     Dates: start: 20030101
  3. TEKTURNA [Suspect]
     Indication: DIABETIC NEPHROPATHY
     Dosage: 150 MG, DAILY
     Dates: start: 20100510, end: 20101011
  4. EUPRESSYL [Concomitant]
     Indication: HYPERTENSION
     Dosage: 60 MG, BID
     Dates: start: 20030101, end: 20101025
  5. AVANDAMET [Concomitant]
     Dosage: 1 DF, BID
  6. TEKTURNA [Suspect]
     Indication: HYPERTENSION

REACTIONS (7)
  - ORTHOPNOEA [None]
  - BLOOD CREATININE INCREASED [None]
  - DYSPNOEA [None]
  - ATRIAL FIBRILLATION [None]
  - WEIGHT INCREASED [None]
  - ARRHYTHMIA [None]
  - OEDEMA PERIPHERAL [None]
